FAERS Safety Report 6576419-X (Version None)
Quarter: 2010Q1

REPORT INFORMATION
  Report Type: 
  Country: None (occurrence: None)
  Receive Date: 20100210
  Receipt Date: 20100205
  Transmission Date: 20100710
  Serious: Yes (Death)
  Sender: FDA-Public Use
  Company Number: JP-ELI_LILLY_AND_COMPANY-JP201002001772

PATIENT
  Age: 65 Year
  Sex: Female

DRUGS (1)
  1. EXENATIDE [Suspect]
     Indication: TYPE 2 DIABETES MELLITUS
     Dosage: 2.0 MG, WEEKLY (1/W)
     Route: 058
     Dates: start: 20100129

REACTIONS (1)
  - DEATH [None]
